FAERS Safety Report 4376777-0 (Version None)
Quarter: 2004Q2

REPORT INFORMATION
  Report Type: 
  Country: None (occurrence: None)
  Receive Date: 20040608
  Receipt Date: 20040526
  Transmission Date: 20050107
  Serious: Yes (Other)
  Sender: FDA-Public Use
  Company Number: HQWYE165102JUN04

PATIENT
  Sex: 0

DRUGS (1)
  1. EFFEXOR XR [Suspect]

REACTIONS (1)
  - FRACTURE NONUNION [None]
